FAERS Safety Report 8974190 (Version 1)
Quarter: 2012Q4

REPORT INFORMATION
  Report Type: Spontaneous
  Country: GB (occurrence: None)
  Receive Date: 20121212
  Receipt Date: 20121212
  Transmission Date: 20130627
  Serious: Yes (Other)
  Sender: FDA-Public Use
  Company Number: AUR-APL-2012-05234

PATIENT
  Age: 60 Year
  Sex: Female

DRUGS (2)
  1. CITALOPRAM (CITALOPRAM) [Suspect]
     Indication: DRUG USE FOR UNKNOWN INDICATION
     Dosage: 20 mg (20mg, 1 in 1 D), Unknown
  2. TRAMADOL (TRAMADOL) [Concomitant]

REACTIONS (3)
  - Irritability [None]
  - Reaction to drug excipients [None]
  - Tablet physical issue [None]
